FAERS Safety Report 6441341-6 (Version None)
Quarter: 2009Q4

REPORT INFORMATION
  Report Type: 
  Country: None (occurrence: None)
  Receive Date: 20091116
  Receipt Date: 20091109
  Transmission Date: 20100525
  Serious: Yes (Other)
  Sender: FDA-Public Use
  Company Number: US-KINGPHARMUSA00001-K200901405

PATIENT
  Sex: Female
  Weight: 77.098 kg

DRUGS (2)
  1. EPIPEN [Suspect]
     Dosage: UNK, SINGLE
     Dates: start: 20090822, end: 20090822
  2. THYROID PREPARATIONS [Concomitant]
     Indication: THYROID DISORDER

REACTIONS (3)
  - ACCIDENTAL EXPOSURE [None]
  - CONVULSION [None]
  - EXPIRED DRUG ADMINISTERED [None]
